FAERS Safety Report 8675630 (Version 3)
Quarter: 2012Q4

REPORT INFORMATION
  Report Type: 
  Country: GB (occurrence: GB)
  Receive Date: 20120720
  Receipt Date: 20120904
  Transmission Date: 20130627
  Serious: Yes (Other)
  Sender: FDA-Public Use
  Company Number: GB-GLAXOSMITHKLINE-B0815449A

PATIENT
  Sex: Female

DRUGS (4)
  1. SERETIDE [Suspect]
     Indication: ASTHMA
     Dosage: 2PUFF Twice per day
     Route: 055
     Dates: end: 20120704
  2. FLIXONASE [Concomitant]
  3. VENTOLIN [Concomitant]
  4. TELFAST [Concomitant]

REACTIONS (3)
  - Asthma [Recovered/Resolved]
  - Drug ineffective [Recovered/Resolved]
  - Product quality issue [Unknown]
